FAERS Safety Report 6575677-5 (Version None)
Quarter: 2010Q1

REPORT INFORMATION
  Report Type: 
  Country: None (occurrence: None)
  Receive Date: 20100209
  Receipt Date: 20100202
  Transmission Date: 20100710
  Serious: Yes (Hospitalization)
  Sender: FDA-Public Use
  Company Number: JP-MERCK-1002USA00904

PATIENT

DRUGS (1)
  1. PEPCID [Suspect]
     Route: 048

REACTIONS (1)
  - ANAPHYLACTOID REACTION [None]
